FAERS Safety Report 4863527-4 (Version None)
Quarter: 2005Q4

REPORT INFORMATION
  Report Type: 
  Country: None (occurrence: None)
  Receive Date: 20051222
  Receipt Date: 20050405
  Transmission Date: 20060501
  Serious: No
  Sender: FDA-Public Use
  Company Number: US-GLAXOSMITHKLINE-A0552788A

PATIENT
  Age: 63 Year
  Sex: Female

DRUGS (3)
  1. FLONASE [Suspect]
     Indication: RHINITIS
     Dosage: 2SPR PER DAY
     Route: 045
  2. TOPROL-XL [Concomitant]
  3. AMBIEN [Concomitant]

REACTIONS (2)
  - HEART RATE INCREASED [None]
  - INSOMNIA [None]
